FAERS Safety Report 9287947 (Version 2)
Quarter: 2013Q2

REPORT INFORMATION
  Report Type: Report from Study
  Country: JP (occurrence: JP)
  Receive Date: 20130514
  Receipt Date: 20130618
  Transmission Date: 20140414
  Serious: Yes (Death, Hospitalization)
  Sender: FDA-Public Use
  Company Number: JP-PFIZER INC-2013144202

PATIENT
  Age: 84 Year
  Sex: Female
  Weight: 46.4 kg

DRUGS (14)
  1. REVATIO [Suspect]
     Indication: PULMONARY ARTERIAL HYPERTENSION
     Dosage: 5 MG, 3X/DAY
     Route: 048
     Dates: start: 20090418, end: 20090422
  2. REVATIO [Suspect]
     Dosage: 10 MG, 3X/DAY
     Route: 048
     Dates: start: 20090423, end: 20090425
  3. REVATIO [Suspect]
     Dosage: 20 MG, 3X/DAY
     Route: 048
     Dates: start: 20090426, end: 20090501
  4. FLUITRAN [Concomitant]
     Dosage: UNK
     Route: 048
     Dates: end: 20090501
  5. LASIX [Concomitant]
     Dosage: UNK
     Route: 048
     Dates: end: 20090501
  6. ALDACTONE-A [Concomitant]
     Dosage: UNK
     Route: 048
     Dates: end: 20090501
  7. MAGMITT [Concomitant]
     Indication: PROPHYLAXIS
     Dosage: UNK
     Route: 048
     Dates: end: 20090501
  8. WARFARIN [Concomitant]
     Indication: PULMONARY HYPERTENSION
     Dosage: UNK
     Route: 048
     Dates: end: 20090501
  9. GASCON [Concomitant]
     Indication: PROPHYLAXIS
     Dosage: UNK
     Route: 048
     Dates: end: 20090501
  10. DORNER [Concomitant]
     Indication: PULMONARY HYPERTENSION
     Dosage: UNK
     Route: 048
     Dates: end: 20090501
  11. HANP [Concomitant]
     Route: 042
  12. DOBUPUM [Concomitant]
     Dosage: UNK
     Route: 042
  13. CORETEC [Concomitant]
     Dosage: UNK
     Route: 042
     Dates: start: 20090424
  14. LASIX [Concomitant]
     Dosage: UNK
     Route: 042

REACTIONS (2)
  - Cardiac failure chronic [Fatal]
  - Pulmonary hypertension [Fatal]
